FAERS Safety Report 13915681 (Version 1)
Quarter: 2017Q3

REPORT INFORMATION
  Report Type: Spontaneous
  Country: US (occurrence: US)
  Receive Date: 20170829
  Receipt Date: 20170829
  Transmission Date: 20171127
  Serious: No
  Sender: FDA-Public Use
  Company Number: US-ENDO PHARMACEUTICALS INC-2017-003021

PATIENT

DRUGS (1)
  1. PREDNISONE TABLETS 10MG [Suspect]
     Active Substance: PREDNISONE
     Indication: PAIN
     Dosage: UNK UNK, UNKNOWN
     Route: 048

REACTIONS (2)
  - Drug effect decreased [Unknown]
  - Wrong technique in product usage process [Unknown]
